FAERS Safety Report 6701202-1 (Version None)
Quarter: 2010Q2

REPORT INFORMATION
  Report Type: 
  Country: None (occurrence: None)
  Receive Date: 20100428
  Receipt Date: 20100428
  Transmission Date: 20101027
  Serious: No
  Sender: FDA-Public Use
  Company Number: None

PATIENT
  Sex: Female
  Weight: 70.9 kg

DRUGS (1)
  1. EPIPEN [Suspect]
     Indication: HYPERSENSITIVITY
     Dosage: AS USED PRN

REACTIONS (6)
  - DEVICE MALFUNCTION [None]
  - INJURY ASSOCIATED WITH DEVICE [None]
  - MEDICATION ERROR [None]
  - PARAESTHESIA [None]
  - PERIPHERAL ISCHAEMIA [None]
  - SKIN DISCOLOURATION [None]
